FAERS Safety Report 23375867 (Version 2)
Quarter: 2024Q1

REPORT INFORMATION
  Report Type: Other
  Country: CA (occurrence: None)
  Receive Date: 20240108
  Receipt Date: 20240215
  Transmission Date: 20240410
  Serious: No
  Sender: FDA-Public Use
  Company Number: CA-ROCHE-3485399

PATIENT
  Age: 58 Year
  Sex: Female

DRUGS (1)
  1. OCREVUS [Suspect]
     Active Substance: OCRELIZUMAB
     Indication: Primary progressive multiple sclerosis
     Dosage: 300 MG AT DAY 0 AND 14, THEN 600 MG EVERY 6 MONTHS
     Route: 042
     Dates: start: 20191023

REACTIONS (5)
  - Influenza [Recovered/Resolved]
  - Dizziness [Recovered/Resolved]
  - Eye movement disorder [Not Recovered/Not Resolved]
  - Feeling hot [Unknown]
  - Hypoacusis [Unknown]

NARRATIVE: CASE EVENT DATE: 20231224
